FAERS Safety Report 6329332-7 (Version None)
Quarter: 2009Q3

REPORT INFORMATION
  Report Type: 
  Country: None (occurrence: None)
  Receive Date: 20090826
  Receipt Date: 20090818
  Transmission Date: 20100115
  Serious: Yes (Death)
  Sender: FDA-Public Use
  Company Number: FR-WATSON-2009-06732

PATIENT
  Age: 8 Year
  Sex: Male

DRUGS (3)
  1. ETOPOSIDE [Suspect]
     Indication: MEDULLOBLASTOMA
     Dosage: 25 MG/M2, 6 CYCLES
     Route: 048
  2. CELECOXIB [Suspect]
     Indication: MEDULLOBLASTOMA
     Dosage: 200 MG, DAILY
  3. CYCLOPHOSPHAMIDE [Suspect]
     Indication: MEDULLOBLASTOMA
     Dosage: 30 MG/M2, DAILY 6 CYCLES
     Route: 048

REACTIONS (2)
  - INTRACRANIAL PRESSURE INCREASED [None]
  - SUBDURAL HAEMATOMA [None]
